FAERS Safety Report 8450230-7 (Version None)
Quarter: 2012Q2

REPORT INFORMATION
  Report Type: 
  Country: None (occurrence: None)
  Receive Date: 20120620
  Receipt Date: 20120612
  Transmission Date: 20120825
  Serious: Yes (Hospitalization)
  Sender: FDA-Public Use
  Company Number: US-BAYER-2012-014454

PATIENT
  Age: 21 Year
  Sex: Female
  Weight: 49.887 kg

DRUGS (2)
  1. ACETAMINOPHEN [Concomitant]
     Indication: HEADACHE
     Dosage: UNK
  2. YAZ [Suspect]
     Dosage: UNK
     Dates: start: 20060823, end: 20080101

REACTIONS (5)
  - GALLBLADDER DISORDER [None]
  - PAIN [None]
  - INJURY [None]
  - EMOTIONAL DISTRESS [None]
  - CHOLECYSTITIS CHRONIC [None]
